FAERS Safety Report 12314236 (Version 3)
Quarter: 2017Q1

REPORT INFORMATION
  Report Type: Spontaneous
  Country: JP (occurrence: JP)
  Receive Date: 20160428
  Receipt Date: 20170220
  Transmission Date: 20170428
  Serious: Yes (Life-Threatening, Hospitalization)
  Sender: FDA-Public Use
  Company Number: JP-JNJFOC-20150905382

PATIENT
  Age: 57 Year
  Sex: Female

DRUGS (7)
  1. SENNOSIDE [Concomitant]
     Active Substance: SENNOSIDES
     Route: 065
  2. GLIMEPIRIDE. [Suspect]
     Active Substance: GLIMEPIRIDE
     Indication: PRODUCT USED FOR UNKNOWN INDICATION
     Route: 048
  3. VILDAGLIPTIN [Concomitant]
     Active Substance: VILDAGLIPTIN
     Route: 065
  4. CANAGLU [Suspect]
     Active Substance: CANAGLIFLOZIN
     Indication: TYPE 2 DIABETES MELLITUS
     Route: 048
     Dates: start: 20141222, end: 20150821
  5. ATORVASTATIN [Concomitant]
     Active Substance: ATORVASTATIN
     Route: 065
  6. EPADEL [Concomitant]
     Active Substance: ICOSAPENT
     Route: 065
  7. MICAMLO [Concomitant]
     Active Substance: AMLODIPINE BESYLATE\TELMISARTAN
     Route: 065

REACTIONS (5)
  - Pyelonephritis [Recovered/Resolved]
  - Ureterolithiasis [Recovered/Resolved]
  - Urinary tract infection [Recovered/Resolved]
  - Acute respiratory distress syndrome [Recovered/Resolved]
  - Septic shock [Recovered/Resolved]

NARRATIVE: CASE EVENT DATE: 20150822
